FAERS Safety Report 14302376 (Version 1)
Quarter: 2017Q4

REPORT INFORMATION
  Report Type: Spontaneous
  Country: US (occurrence: US)
  Receive Date: 20171219
  Receipt Date: 20171219
  Transmission Date: 20180321
  Serious: No
  Sender: FDA-Public Use
  Company Number: US-SUPERNUS PHARMACEUTICALS, INC.-2017SUP00094

PATIENT
  Age: 48 Year
  Sex: Female
  Weight: 74.83 kg

DRUGS (3)
  1. TROKENDI XR [Suspect]
     Active Substance: TOPIRAMATE
     Indication: BACK PAIN
     Dosage: 50 MG, 1X/DAY
     Dates: start: 201703, end: 201704
  2. TROKENDI XR [Suspect]
     Active Substance: TOPIRAMATE
     Indication: BACK PAIN
     Dosage: 25 MG, 1X/DAY
     Route: 048
     Dates: start: 201703, end: 201703
  3. TROKENDI XR [Suspect]
     Active Substance: TOPIRAMATE
     Indication: BACK PAIN
     Dosage: 100 MG, 1X/DAY
     Dates: start: 201704

REACTIONS (11)
  - Burning sensation [Not Recovered/Not Resolved]
  - Pharyngitis streptococcal [Recovering/Resolving]
  - Aphasia [Not Recovered/Not Resolved]
  - Memory impairment [Not Recovered/Not Resolved]
  - Disturbance in attention [Not Recovered/Not Resolved]
  - Upper respiratory tract infection [Recovering/Resolving]
  - Headache [Unknown]
  - Cognitive disorder [Not Recovered/Not Resolved]
  - Paraesthesia [Not Recovered/Not Resolved]
  - Product use in unapproved indication [Not Recovered/Not Resolved]
  - Cough [Recovering/Resolving]

NARRATIVE: CASE EVENT DATE: 201703
